FAERS Safety Report 13910566 (Version 1)
Quarter: 2017Q3

REPORT INFORMATION
  Report Type: Spontaneous
  Country: US (occurrence: US)
  Receive Date: 20170825
  Receipt Date: 20170825
  Transmission Date: 20171127
  Serious: No
  Sender: FDA-Public Use
  Company Number: None

PATIENT
  Age: 60 Year
  Sex: Male

DRUGS (1)
  1. TEMOZOLOMIDE. [Suspect]
     Active Substance: TEMOZOLOMIDE
     Indication: BRAIN NEOPLASM MALIGNANT
     Dosage: 150 MG ORAL 5 DAYS PER WEEK?
     Route: 048
     Dates: start: 20170817

REACTIONS (3)
  - Pruritus [None]
  - Erythema [None]
  - Blister rupture [None]

NARRATIVE: CASE EVENT DATE: 20170824
